FAERS Safety Report 5116604-7 (Version None)
Quarter: 2006Q3

REPORT INFORMATION
  Report Type: 
  Country: None (occurrence: None)
  Receive Date: 20060928
  Receipt Date: 20060921
  Transmission Date: 20061208
  Serious: Yes (Other)
  Sender: FDA-Public Use
  Company Number: 2006UW18498

PATIENT
  Age: 12 Year
  Sex: Male

DRUGS (1)
  1. PULMICORT [Suspect]
     Route: 045

REACTIONS (1)
  - OSTEOPENIA [None]
